FAERS Safety Report 5750643-8 (Version None)
Quarter: 2008Q2

REPORT INFORMATION
  Report Type: 
  Country: None (occurrence: None)
  Receive Date: 20080528
  Receipt Date: 20080510
  Transmission Date: 20081010
  Serious: No
  Sender: FDA-Public Use
  Company Number: US-ABBOTT-08P-163-0451407-00

PATIENT
  Sex: Male

DRUGS (1)
  1. SIMCOR [Suspect]
     Indication: BLOOD CHOLESTEROL INCREASED
     Dosage: ON HOLD AS OF 10-MAY-2008
     Route: 048
     Dates: start: 20080507, end: 20080510

REACTIONS (7)
  - ANOREXIA [None]
  - CHEST PAIN [None]
  - DIARRHOEA [None]
  - DYSPHAGIA [None]
  - GASTROOESOPHAGEAL REFLUX DISEASE [None]
  - HEADACHE [None]
  - INFLUENZA [None]
